FAERS Safety Report 12328010 (Version 3)
Quarter: 2016Q2

REPORT INFORMATION
  Report Type: Report from Study
  Country: JP (occurrence: JP)
  Receive Date: 20160503
  Receipt Date: 20160512
  Transmission Date: 20160815
  Serious: Yes (Hospitalization)
  Sender: FDA-Public Use
  Company Number: JP-EISAI MEDICAL RESEARCH-EC-2016-016574

PATIENT
  Age: 61 Year
  Sex: Female
  Weight: 75 kg

DRUGS (17)
  1. PERAMPANEL [Suspect]
     Active Substance: PERAMPANEL
     Dosage: DOUBLE BLIND DOSE DECREASED
     Route: 048
     Dates: start: 20121222, end: 20130222
  2. PERAMPANEL [Suspect]
     Active Substance: PERAMPANEL
     Route: 048
     Dates: start: 20130405, end: 20130426
  3. SODIUM HYALURONATE [Concomitant]
     Active Substance: HYALURONATE SODIUM
  4. PERAMPANEL [Suspect]
     Active Substance: PERAMPANEL
     Dosage: CONVERSION PHASE DOSE DECREASED
     Route: 048
     Dates: start: 20130329, end: 20130404
  5. TEGRETOL [Concomitant]
     Active Substance: CARBAMAZEPINE
  6. MAGMITT [Concomitant]
     Active Substance: MAGNESIUM OXIDE
  7. SHAKUYAKUKANZOTO [Concomitant]
     Active Substance: HERBALS
  8. LASIX [Concomitant]
     Active Substance: FUROSEMIDE
  9. PERAMPANEL [Suspect]
     Active Substance: PERAMPANEL
     Indication: PARTIAL SEIZURES
     Dosage: DOUBLE BLIND
     Route: 048
     Dates: start: 20120915, end: 20121221
  10. PERAMPANEL [Suspect]
     Active Substance: PERAMPANEL
     Dosage: CONVERSION PHASE
     Route: 048
     Dates: start: 20130223, end: 20130328
  11. MOHRUS TAPE [Concomitant]
     Active Substance: KETOPROFEN
  12. REBAMIPIDE [Concomitant]
     Active Substance: REBAMIPIDE
  13. LANDSEN [Concomitant]
     Active Substance: CLONAZEPAM
  14. THYRADIN S [Concomitant]
     Active Substance: LEVOTHYROXINE SODIUM
  15. PERAMPANEL [Suspect]
     Active Substance: PERAMPANEL
     Route: 048
     Dates: start: 20130427
  16. TOPINA [Concomitant]
     Active Substance: TOPIRAMATE
  17. LOXONIN [Concomitant]
     Active Substance: LOXOPROFEN SODIUM

REACTIONS (1)
  - Epilepsy [Recovered/Resolved]

NARRATIVE: CASE EVENT DATE: 20160428
